FAERS Safety Report 6699824-X (Version None)
Quarter: 2010Q2

REPORT INFORMATION
  Report Type: 
  Country: None (occurrence: None)
  Receive Date: 20100428
  Receipt Date: 20100122
  Transmission Date: 20101027
  Serious: No
  Sender: FDA-Public Use
  Company Number: A0841016A

PATIENT
  Age: 77 Year
  Sex: Female

DRUGS (5)
  1. LUXIQ [Suspect]
     Route: 061
     Dates: start: 20090101
  2. LIPITOR [Concomitant]
  3. ATENOLOL [Concomitant]
  4. ACCUPRIL [Concomitant]
  5. CLINDAMYCIN [Concomitant]
     Route: 061

REACTIONS (4)
  - ACNE [None]
  - DRUG INEFFECTIVE [None]
  - DRY SKIN [None]
  - SKIN INFECTION [None]
